FAERS Safety Report 14847903 (Version 1)
Quarter: 2018Q2

REPORT INFORMATION
  Report Type: Spontaneous
  Country: GB (occurrence: GB)
  Receive Date: 20180504
  Receipt Date: 20180504
  Transmission Date: 20180711
  Serious: Yes (Hospitalization)
  Sender: FDA-Public Use
  Company Number: GB-TEVA-2018-GB-887047

PATIENT
  Age: 91 Year
  Sex: Male

DRUGS (15)
  1. FERROUS SULFATE. [Concomitant]
     Active Substance: FERROUS SULFATE
     Dosage: 400 MILLIGRAM DAILY;
  2. COCODAMOL [Concomitant]
     Active Substance: ACETAMINOPHEN\CODEINE PHOSPHATE
     Dosage: 30MG/500MG 1-2 4 TIMES DAILY
     Route: 065
  3. FULTIUM-D3 [Concomitant]
     Active Substance: CHOLECALCIFEROL
     Dosage: 800 IU (INTERNATIONAL UNIT) DAILY;
     Route: 065
  4. ONEALFA [Concomitant]
     Active Substance: ALFACALCIDOL
     Dosage: MON, WEDNESDAY AND FRIDAY
  5. DOXAZOSIN [Concomitant]
     Active Substance: DOXAZOSIN\DOXAZOSIN MESYLATE
     Dosage: 4 MILLIGRAM DAILY;
  6. OLIVE OIL [Concomitant]
     Active Substance: OLIVE OIL
     Dosage: 3 DOSAGE FORMS DAILY;
     Route: 065
  7. FOLIC ACID. [Concomitant]
     Active Substance: FOLIC ACID
     Dosage: 5 MILLIGRAM DAILY;
     Route: 065
  8. GLYCERYL TRINITRATE [Concomitant]
     Active Substance: NITROGLYCERIN
     Dosage: 1 TO 2 DOSES UNDER TONGUE AS DIRECTED
     Route: 060
  9. TIOTROPIUM BROMIDE [Concomitant]
     Active Substance: TIOTROPIUM BROMIDE
     Dosage: 2 DOSAGE FORMS DAILY; PUFFS
     Route: 055
  10. AMOXICILLIN. [Suspect]
     Active Substance: AMOXICILLIN
     Route: 065
  11. OMEPRAZOLE. [Concomitant]
     Active Substance: OMEPRAZOLE
     Dosage: 20 MILLIGRAM DAILY;
  12. ATORVASTATIN [Concomitant]
     Active Substance: ATORVASTATIN
     Dosage: 10 MILLIGRAM DAILY;
  13. ISOSORBIDE MONONITRATE. [Concomitant]
     Active Substance: ISOSORBIDE MONONITRATE
     Dosage: 30 MILLIGRAM DAILY; MORNING
     Route: 065
  14. ACETYLSALICYLIC ACID [Concomitant]
     Active Substance: ASPIRIN
     Dosage: 75 MILLIGRAM DAILY;
     Route: 065
  15. SALBUTAMOL [Concomitant]
     Active Substance: ALBUTEROL
     Dosage: 1 OR 2 PUFFS 4 TIMES A DAY WHEN REQUIRED
     Route: 055

REACTIONS (2)
  - Acute kidney injury [Recovered/Resolved]
  - Blood potassium increased [Unknown]

NARRATIVE: CASE EVENT DATE: 20170922
